FAERS Safety Report 9419245 (Version 2)
Quarter: 2013Q3

REPORT INFORMATION
  Report Type: Spontaneous
  Country: US (occurrence: US)
  Receive Date: 20130725
  Receipt Date: 20130731
  Transmission Date: 20140515
  Serious: No
  Sender: FDA-Public Use
  Company Number: US-VERTEX PHARMACEUTICALS INC-2013-008217

PATIENT
  Sex: Male

DRUGS (4)
  1. INCIVEK [Suspect]
     Indication: HEPATITIS C
     Dosage: 750 MG, TID
  2. PEGASYS [Suspect]
     Dosage: 180 ?G, QW
     Route: 058
  3. RIBAVIRIN [Suspect]
     Indication: HEPATITIS C
     Dosage: 600 MG, BID
     Route: 048
  4. MORPHINE [Concomitant]
     Indication: BACK DISORDER

REACTIONS (2)
  - Epistaxis [Recovered/Resolved]
  - Haemoglobin decreased [Not Recovered/Not Resolved]
